FAERS Safety Report 11748928 (Version 1)
Quarter: 2015Q4

REPORT INFORMATION
  Report Type: Spontaneous
  Country: US (occurrence: US)
  Receive Date: 20151118
  Receipt Date: 20151118
  Transmission Date: 20160304
  Serious: Yes (Other)
  Sender: FDA-Public Use
  Company Number: US-ROCHE-1660769

PATIENT
  Age: 48 Year
  Sex: Female

DRUGS (6)
  1. KLONOPIN [Suspect]
     Active Substance: CLONAZEPAM
     Indication: SCHIZOAFFECTIVE DISORDER
     Route: 048
  2. DIVALPROEX [Concomitant]
     Active Substance: DIVALPROEX SODIUM
     Route: 065
  3. VALIUM [Suspect]
     Active Substance: DIAZEPAM
     Indication: PRODUCT USED FOR UNKNOWN INDICATION
     Route: 065
  4. LORAZEPAM. [Concomitant]
     Active Substance: LORAZEPAM
     Route: 065
  5. HYDROCHLOROTHIAZIDE. [Concomitant]
     Active Substance: HYDROCHLOROTHIAZIDE
     Indication: BLOOD PRESSURE MEASUREMENT
     Route: 065
  6. METFORMIN [Concomitant]
     Active Substance: METFORMIN HYDROCHLORIDE
     Indication: DIABETES MELLITUS
     Route: 065

REACTIONS (11)
  - Depression [Not Recovered/Not Resolved]
  - Drug dose omission [Unknown]
  - Panic attack [Not Recovered/Not Resolved]
  - Mood swings [Not Recovered/Not Resolved]
  - Irritability [Not Recovered/Not Resolved]
  - Mania [Unknown]
  - Anger [Not Recovered/Not Resolved]
  - Mobility decreased [Unknown]
  - Anxiety [Not Recovered/Not Resolved]
  - Insomnia [Not Recovered/Not Resolved]
  - Hallucination [Unknown]
